FAERS Safety Report 7404590-6 (Version None)
Quarter: 2011Q2

REPORT INFORMATION
  Report Type: 
  Country: None (occurrence: None)
  Receive Date: 20110411
  Receipt Date: 20110401
  Transmission Date: 20111010
  Serious: Yes (Hospitalization)
  Sender: FDA-Public Use
  Company Number: BE-BIOGENIDEC-2011BI009369

PATIENT
  Age: 45 Year
  Sex: Male

DRUGS (4)
  1. CLONAZEPAM [Concomitant]
  2. TYSABRI [Suspect]
     Indication: RELAPSING-REMITTING MULTIPLE SCLEROSIS
     Route: 042
     Dates: start: 20100212
  3. VALPROATE SODIUM [Concomitant]
     Indication: EPILEPSY
  4. FRAXODI [Concomitant]
     Indication: ANTICOAGULANT THERAPY
     Dates: start: 20101129

REACTIONS (1)
  - EPILEPSY [None]
